FAERS Safety Report 18399844 (Version 1)
Quarter: 2020Q4

REPORT INFORMATION
  Report Type: Spontaneous
  Country: US (occurrence: US)
  Receive Date: 20201019
  Receipt Date: 20201019
  Transmission Date: 20210114
  Serious: Yes (Life-Threatening)
  Sender: FDA-Public Use
  Company Number: US-ALLERGAN-2028775US

PATIENT

DRUGS (1)
  1. VRAYLAR [Suspect]
     Active Substance: CARIPRAZINE
     Indication: PSYCHOTIC DISORDER
     Dosage: 6 MG

REACTIONS (9)
  - Panic attack [Unknown]
  - Cognitive disorder [Unknown]
  - Off label use [Unknown]
  - Self esteem decreased [Unknown]
  - Suicide attempt [Unknown]
  - Anxiety [Unknown]
  - Hallucination, auditory [Not Recovered/Not Resolved]
  - Psychiatric symptom [Unknown]
  - Depression [Unknown]
